FAERS Safety Report 16932988 (Version 1)
Quarter: 2019Q4

REPORT INFORMATION
  Report Type: Report from Study
  Country: None (occurrence: US)
  Receive Date: 20191018
  Receipt Date: 20191018
  Transmission Date: 20200122
  Serious: Yes (Hospitalization, Other)
  Sender: FDA-Public Use
  Company Number: US-ABBVIE-19K-163-2968112-00

PATIENT
  Age: 59 Year
  Sex: Female

DRUGS (1)
  1. HUMIRA [Suspect]
     Active Substance: ADALIMUMAB
     Indication: RHEUMATOID ARTHRITIS
     Route: 058
     Dates: start: 20190411

REACTIONS (12)
  - Arthralgia [Unknown]
  - Sepsis [Unknown]
  - Inflammation [Unknown]
  - Renal failure [Unknown]
  - Headache [Unknown]
  - Blood pressure increased [Unknown]
  - Fall [Unknown]
  - Fatigue [Unknown]
  - Cardiac disorder [Unknown]
  - Drug ineffective [Unknown]
  - Mobility decreased [Unknown]
  - Nausea [Unknown]

NARRATIVE: CASE EVENT DATE: 2019
